FAERS Safety Report 7627352-3 (Version None)
Quarter: 2011Q3

REPORT INFORMATION
  Report Type: 
  Country: None (occurrence: None)
  Receive Date: 20110721
  Receipt Date: 20110708
  Transmission Date: 20111222
  Serious: Yes (Hospitalization, Other)
  Sender: FDA-Public Use
  Company Number: US-ELI_LILLY_AND_COMPANY-US201102007029

PATIENT
  Sex: Male

DRUGS (3)
  1. FORTEO [Suspect]
     Indication: OSTEOPOROSIS
     Dosage: 20 UG, DAILY (1/D)
     Dates: start: 20090101
  2. FORTEO [Suspect]
     Dosage: 20 UG, QD
  3. FORTEO [Suspect]
     Dosage: 20 UG, DAILY (1/D)

REACTIONS (8)
  - DYSPNOEA [None]
  - MALAISE [None]
  - UNRESPONSIVE TO STIMULI [None]
  - SURGERY [None]
  - ASTHENIA [None]
  - PNEUMONIA [None]
  - ORAL SURGERY [None]
  - CHRONIC OBSTRUCTIVE PULMONARY DISEASE [None]
